FAERS Safety Report 7002661-X (Version None)
Quarter: 2010Q3

REPORT INFORMATION
  Report Type: 
  Country: None (occurrence: None)
  Receive Date: 20100920
  Receipt Date: 20100910
  Transmission Date: 20110219
  Serious: No
  Sender: FDA-Public Use
  Company Number: US-ELI_LILLY_AND_COMPANY-US201007002380

PATIENT
  Sex: Male

DRUGS (12)
  1. FORTEO [Suspect]
     Indication: OSTEOPOROSIS
     Dosage: 20 UG, DAILY (1/D)
     Route: 065
     Dates: start: 20090901
  2. ZOCOR [Concomitant]
     Dosage: 40 MG, UNK
  3. SYNTHROID [Concomitant]
     Dosage: 100 UG, UNK
  4. POTASSIUM CHLORIDE [Concomitant]
     Dosage: UNK, UNK
  5. LISINOPRIL [Concomitant]
     Dosage: 10 MG, UNK
  6. ATIVAN [Concomitant]
     Dosage: 0.5 MG, AS NEEDED
  7. ZETIA [Concomitant]
     Dosage: 10 MG, UNK
  8. NEXIUM [Concomitant]
     Dosage: 40 MG, UNK
  9. ALDACTONE [Concomitant]
     Dosage: 25 MG, UNK
  10. ULTRAM [Concomitant]
     Dosage: 10 MG, AS NEEDED
  11. ASPIRIN [Concomitant]
  12. MULTI-VITAMIN [Concomitant]

REACTIONS (1)
  - NO ADVERSE EVENT [None]
